FAERS Safety Report 9612384 (Version 1)
Quarter: 2013Q4

REPORT INFORMATION
  Report Type: Spontaneous
  Country: US (occurrence: US)
  Receive Date: 20131010
  Receipt Date: 20131010
  Transmission Date: 20140711
  Serious: Yes (Disabling, Other)
  Sender: FDA-Public Use
  Company Number: US-PFIZER INC-2013289667

PATIENT
  Age: 51 Year
  Sex: Female
  Weight: 47.17 kg

DRUGS (5)
  1. EFFEXOR XR [Suspect]
     Indication: DEPRESSION
     Dosage: 150 MG IN MORNING, 75 MG IN AFTERNOON AND 150 MG IN NIGHT
     Dates: start: 200508
  2. EFFEXOR XR [Suspect]
     Dosage: 300 MG (2 CAPSULES OF 150MG) IN MORNING AND 75MG IN AFTERNOON
  3. KLONOPIN [Suspect]
     Dosage: UNK
     Dates: start: 2005
  4. SEROQUEL [Suspect]
     Dosage: UNK
     Dates: start: 2008
  5. VITAMIN B12 [Concomitant]
     Dosage: UNK

REACTIONS (3)
  - Hodgkin^s disease [Not Recovered/Not Resolved]
  - Colitis [Unknown]
  - Gallbladder disorder [Unknown]
